FAERS Safety Report 9235907 (Version 1)
Quarter: 2013Q2

REPORT INFORMATION
  Report Type: Spontaneous
  Country: CA (occurrence: CA)
  Receive Date: 20130417
  Receipt Date: 20130417
  Transmission Date: 20140414
  Serious: Yes (Other)
  Sender: FDA-Public Use
  Company Number: CA-ELI_LILLY_AND_COMPANY-CA201302010384

PATIENT
  Age: 55 Year
  Sex: Female
  Weight: 52.15 kg

DRUGS (3)
  1. CYMBALTA [Suspect]
     Indication: MAJOR DEPRESSION
     Dosage: 30 MG, UNK
  2. CYMBALTA [Suspect]
     Dosage: 60 MG, QD
     Route: 048
     Dates: start: 201209, end: 20130202
  3. CYMBALTA [Suspect]
     Dosage: 30 MG, UNK

REACTIONS (1)
  - Colitis ulcerative [Recovered/Resolved]
